FAERS Safety Report 12171468 (Version 1)
Quarter: 2016Q1

REPORT INFORMATION
  Report Type: Spontaneous
  Country: NL (occurrence: NL)
  Receive Date: 20160311
  Receipt Date: 20160311
  Transmission Date: 20160526
  Serious: Yes (Life-Threatening, Other)
  Sender: FDA-Public Use
  Company Number: NL-ASTRAZENECA-2016SE23495

PATIENT
  Sex: Male
  Weight: 76 kg

DRUGS (2)
  1. CRESTOR [Suspect]
     Active Substance: ROSUVASTATIN CALCIUM
     Indication: PROPHYLAXIS
     Route: 048
  2. CRESTOR [Suspect]
     Active Substance: ROSUVASTATIN CALCIUM
     Indication: MYOCARDIAL INFARCTION
     Route: 048

REACTIONS (4)
  - Hypotension [Unknown]
  - Gastrointestinal haemorrhage [Unknown]
  - Decreased appetite [Unknown]
  - Dizziness [Unknown]
